FAERS Safety Report 17495139 (Version 1)
Quarter: 2020Q1

REPORT INFORMATION
  Report Type: Spontaneous
  Country: US (occurrence: US)
  Receive Date: 20200304
  Receipt Date: 20200304
  Transmission Date: 20200409
  Serious: No
  Sender: FDA-Public Use
  Company Number: US-BIODELIVERY SCIENCES INTERNATIONAL-2019BDSI0953

PATIENT
  Age: 66 Year
  Sex: Female

DRUGS (2)
  1. BUPRENORPHINE. [Suspect]
     Active Substance: BUPRENORPHINE
     Indication: PAIN
     Route: 002
  2. HYDROMORPHONE HYDROCHLORIDE. [Concomitant]
     Active Substance: HYDROMORPHONE HYDROCHLORIDE
     Indication: PAIN
     Dosage: UNKNOWN; UNKNOWN
     Route: 065

REACTIONS (4)
  - Headache [Not Recovered/Not Resolved]
  - Incorrect route of product administration [Recovered/Resolved]
  - Drug ineffective [Not Recovered/Not Resolved]
  - Product solubility abnormal [Unknown]
